FAERS Safety Report 7548602-8 (Version None)
Quarter: 2011Q2

REPORT INFORMATION
  Report Type: 
  Country: None (occurrence: None)
  Receive Date: 20110615
  Receipt Date: 20110614
  Transmission Date: 20111010
  Serious: Yes (Hospitalization)
  Sender: FDA-Public Use
  Company Number: US-BRISTOL-MYERS SQUIBB COMPANY-15777931

PATIENT
  Age: 40 Year
  Sex: Male

DRUGS (12)
  1. ZOFRAN [Concomitant]
  2. OXYCODONE HCL [Concomitant]
     Route: 048
  3. LORAZEPAM [Concomitant]
     Indication: ANXIETY
     Route: 048
  4. LORAZEPAM [Concomitant]
     Indication: NAUSEA
     Route: 048
  5. BUSPAR [Concomitant]
  6. OXYCONTIN [Concomitant]
     Route: 048
  7. TESTOSTERONE [Concomitant]
  8. IPILIMUMAB [Suspect]
     Indication: MALIGNANT MELANOMA
     Dosage: WEEK 1
     Route: 042
     Dates: start: 20110211, end: 20110211
  9. SENNA-S [Concomitant]
  10. MARINOL [Concomitant]
  11. PREDNISONE [Concomitant]
  12. AMBIEN [Concomitant]

REACTIONS (1)
  - PULMONARY EMBOLISM [None]
